FAERS Safety Report 7309483-0 (Version None)
Quarter: 2011Q1

REPORT INFORMATION
  Report Type: 
  Country: None (occurrence: None)
  Receive Date: 20110223
  Receipt Date: 20110218
  Transmission Date: 20110831
  Serious: Yes (Hospitalization, Other)
  Sender: FDA-Public Use
  Company Number: US-AMGEN-USASP2011002900

PATIENT
  Age: 69 Year
  Sex: Male

DRUGS (14)
  1. COLCHICINE [Concomitant]
  2. MULTI VITAMIN AND MINERAL + SELENIUM [Concomitant]
  3. RITUXAN [Concomitant]
  4. ALLOPURINOL [Concomitant]
  5. LORATADINE [Concomitant]
  6. NPLATE [Suspect]
     Indication: IDIOPATHIC THROMBOCYTOPENIC PURPURA
     Dates: start: 20100427, end: 20101208
  7. AMLODIPINE [Concomitant]
  8. LISINOPRIL [Concomitant]
  9. CELEXA [Concomitant]
  10. FISH OIL [Concomitant]
  11. IMMUNOGLOBULINS [Concomitant]
  12. COREG [Concomitant]
  13. NIACIN [Concomitant]
  14. PREDNISONE [Concomitant]
     Dosage: 5 MG, TID
     Route: 048
     Dates: start: 20100413

REACTIONS (2)
  - DRUG INEFFECTIVE [None]
  - THROMBOCYTOPENIA [None]
